FAERS Safety Report 9681796 (Version 2)
Quarter: 2014Q2

REPORT INFORMATION
  Report Type: Spontaneous
  Country: US (occurrence: US)
  Receive Date: 20131111
  Receipt Date: 20140422
  Transmission Date: 20141212
  Serious: Yes (Hospitalization, Other)
  Sender: FDA-Public Use
  Company Number: US-009507513-1311USA001671

PATIENT
  Sex: Female

DRUGS (2)
  1. FOSAMAX [Suspect]
     Dosage: UNK
     Route: 048
  2. ALENDRONATE SODIUM [Suspect]
     Dosage: UNK

REACTIONS (5)
  - Femur fracture [Unknown]
  - Intramedullary rod insertion [Unknown]
  - Femur fracture [Unknown]
  - Femur fracture [Unknown]
  - Pain [Not Recovered/Not Resolved]
